FAERS Safety Report 8215506-7 (Version None)
Quarter: 2012Q1

REPORT INFORMATION
  Report Type: 
  Country: None (occurrence: None)
  Receive Date: 20120316
  Receipt Date: 20120305
  Transmission Date: 20120608
  Serious: Yes (Death, Other)
  Sender: FDA-Public Use
  Company Number: KR-ROCHE-1048515

PATIENT
  Age: 85 Year
  Sex: Male

DRUGS (2)
  1. UROKINASE [Suspect]
     Indication: ISCHAEMIC STROKE
  2. ALTEPLASE [Suspect]
     Indication: ISCHAEMIC STROKE
     Route: 042

REACTIONS (2)
  - DEATH [None]
  - CEREBRAL HAEMATOMA [None]
